FAERS Safety Report 12113507 (Version 1)
Quarter: 2016Q1

REPORT INFORMATION
  Report Type: Spontaneous
  Country: US (occurrence: None)
  Receive Date: 20160224
  Receipt Date: 20160224
  Transmission Date: 20160526
  Serious: Yes (Other)
  Sender: FDA-Public Use
  Company Number: None

PATIENT
  Age: 37 Year
  Sex: Male

DRUGS (1)
  1. MYCOPHENOLATE [Suspect]
     Active Substance: MYCOPHENOLIC ACID
     Indication: NEPHRITIS
     Route: 048
     Dates: start: 20151201

REACTIONS (2)
  - Oedema peripheral [None]
  - Oedema [None]

NARRATIVE: CASE EVENT DATE: 20160201
